FAERS Safety Report 6022925-6 (Version None)
Quarter: 2008Q4

REPORT INFORMATION
  Report Type: 
  Country: None (occurrence: None)
  Receive Date: 20081230
  Receipt Date: 20081223
  Transmission Date: 20090506
  Serious: Yes (Hospitalization)
  Sender: FDA-Public Use
  Company Number: US-ASTRAZENECA-2008UW28728

PATIENT
  Age: 26 Year
  Sex: Female
  Weight: 54.4 kg

DRUGS (3)
  1. ENTOCORT EC [Suspect]
     Indication: CROHN'S DISEASE
     Route: 048
     Dates: start: 20081214
  2. HUMIRA [Concomitant]
     Route: 058
  3. PREDNISONE [Concomitant]
     Dosage: 10-40MG DAILY

REACTIONS (6)
  - BACK PAIN [None]
  - ERYTHEMA MULTIFORME [None]
  - RASH [None]
  - SKIN LESION [None]
  - STEVENS-JOHNSON SYNDROME [None]
  - STOMATITIS [None]
